FAERS Safety Report 6024364-0 (Version None)
Quarter: 2008Q4

REPORT INFORMATION
  Report Type: 
  Country: None (occurrence: None)
  Receive Date: 20081222
  Receipt Date: 20081023
  Transmission Date: 20090506
  Serious: No
  Sender: FDA-Public Use
  Company Number: SPV1-2008-02303

PATIENT
  Age: 22 Year
  Sex: Male

DRUGS (2)
  1. VYVANSE [Suspect]
     Dosage: 150 MG, ONE DOSE AT 3PM ; 150 MG, ONE DOSE AT 4PM
     Dates: start: 20081023, end: 20081023
  2. VYVANSE [Suspect]
     Dosage: 150 MG, ONE DOSE AT 3PM ; 150 MG, ONE DOSE AT 4PM
     Dates: start: 20081023, end: 20081023

REACTIONS (3)
  - COMPULSIVE LIP BITING [None]
  - DRUG DIVERSION [None]
  - OVERDOSE [None]
